FAERS Safety Report 21655175 (Version 2)
Quarter: 2023Q1

REPORT INFORMATION
  Report Type: Spontaneous
  Country: US (occurrence: US)
  Receive Date: 20221129
  Receipt Date: 20230210
  Transmission Date: 20230418
  Serious: No
  Sender: FDA-Public Use
  Company Number: US-BRISTOL-MYERS SQUIBB COMPANY-2022-144599

PATIENT
  Age: 74 Year
  Sex: Male
  Weight: 77.56 kg

DRUGS (2)
  1. ONUREG [Suspect]
     Active Substance: AZACITIDINE
     Indication: Acute myeloid leukaemia
     Dosage: DAILY FOR 14DAYS
     Route: 048
     Dates: start: 20221101
  2. ONUREG [Suspect]
     Active Substance: AZACITIDINE
     Indication: Myelodysplastic syndrome

REACTIONS (3)
  - Dyspepsia [Unknown]
  - Decreased appetite [Unknown]
  - Fatigue [Unknown]
